FAERS Safety Report 16753393 (Version 1)
Quarter: 2019Q3

REPORT INFORMATION
  Report Type: Spontaneous
  Country: ES (occurrence: ES)
  Receive Date: 20190829
  Receipt Date: 20190829
  Transmission Date: 20191005
  Serious: Yes (Hospitalization)
  Sender: FDA-Public Use
  Company Number: ES-TEVA-2019-ES-1097732

PATIENT
  Age: 57 Year
  Sex: Male

DRUGS (2)
  1. PACLITAXEL (2698A) [Suspect]
     Active Substance: PACLITAXEL
     Dates: start: 20181030, end: 20190520
  2. CARBOPLATINO [Suspect]
     Active Substance: CARBOPLATIN
     Dates: start: 20181030, end: 20190520

REACTIONS (1)
  - Febrile neutropenia [Recovered/Resolved]

NARRATIVE: CASE EVENT DATE: 20190507
